FAERS Safety Report 15018857 (Version 1)
Quarter: 2018Q2

REPORT INFORMATION
  Report Type: Spontaneous
  Country: GB (occurrence: GB)
  Receive Date: 20180616
  Receipt Date: 20180616
  Transmission Date: 20180711
  Serious: Yes (Hospitalization)
  Sender: FDA-Public Use
  Company Number: GB-MICRO LABS LIMITED-BB2018-01164

PATIENT
  Age: 68 Year
  Sex: Male

DRUGS (11)
  1. SIMVASTATIN. [Suspect]
     Active Substance: SIMVASTATIN
     Dosage: AT NIGHT.
  2. BISOPROLOL [Suspect]
     Active Substance: BISOPROLOL
  3. GABAPENTIN. [Suspect]
     Active Substance: GABAPENTIN
  4. COLECALCIFEROL [Suspect]
     Active Substance: CHOLECALCIFEROL
     Dosage: MORNING
  5. RAMIPRIL. [Suspect]
     Active Substance: RAMIPRIL
     Dosage: MORNING
  6. PARACETAMOL [Suspect]
     Active Substance: ACETAMINOPHEN
     Dosage: FOUR TIMES A DAY.
  7. DIHYDROCODEINE TARTRATE [Suspect]
     Active Substance: DIHYDROCODEINE BITARTRATE
     Dosage: THREE TIMES A DAY
  8. XARELTO [Suspect]
     Active Substance: RIVAROXABAN
     Indication: ATRIAL FIBRILLATION
     Dosage: MORNING
  9. DIGOXIN. [Suspect]
     Active Substance: DIGOXIN
     Dosage: MORNING
  10. LANSOPRAZOLE. [Suspect]
     Active Substance: LANSOPRAZOLE
     Dosage: MORNING
  11. TAMSULOSIN HYDROCHLORIDE. [Suspect]
     Active Substance: TAMSULOSIN HYDROCHLORIDE

REACTIONS (1)
  - Cerebral infarction [Not Recovered/Not Resolved]
